FAERS Safety Report 20749777 (Version 3)
Quarter: 2022Q2

REPORT INFORMATION
  Report Type: Spontaneous
  Country: BE (occurrence: BE)
  Receive Date: 20220426
  Receipt Date: 20220524
  Transmission Date: 20220720
  Serious: Yes (Other)
  Sender: FDA-Public Use
  Company Number: BE-002147023-NVSC2022BE068425

PATIENT
  Sex: Female

DRUGS (4)
  1. ACETAMINOPHEN [Suspect]
     Active Substance: ACETAMINOPHEN
     Indication: Schnitzler^s syndrome
     Dosage: 1 GRAM (1 G, (IN PROPORTION TO 1 GRAM)
     Route: 065
  2. ACETAMINOPHEN [Suspect]
     Active Substance: ACETAMINOPHEN
     Indication: Pyrexia
     Dosage: UNK
     Route: 065
  3. ACETAMINOPHEN [Suspect]
     Active Substance: ACETAMINOPHEN
     Indication: Pain
     Dosage: UNK
     Route: 065
  4. COLCHICINE [Suspect]
     Active Substance: COLCHICINE
     Indication: Schnitzler^s syndrome
     Dosage: UNK
     Route: 065

REACTIONS (13)
  - Schnitzler^s syndrome [Unknown]
  - Thrombocytosis [Unknown]
  - Pain in extremity [Unknown]
  - Lymphadenopathy [Unknown]
  - Inflammation [Unknown]
  - Hypergammaglobulinaemia benign monoclonal [Unknown]
  - Neutrophilic dermatosis [Unknown]
  - Weight decreased [Unknown]
  - Fatigue [Unknown]
  - Urticaria [Unknown]
  - Product use in unapproved indication [Unknown]
  - Drug ineffective [Unknown]
  - Off label use [Unknown]

NARRATIVE: CASE EVENT DATE: 20180101
